FAERS Safety Report 15423471 (Version 1)
Quarter: 2018Q3

REPORT INFORMATION
  Report Type: Spontaneous
  Country: GR (occurrence: GR)
  Receive Date: 20180925
  Receipt Date: 20180925
  Transmission Date: 20181010
  Serious: Yes (Other)
  Sender: FDA-Public Use
  Company Number: GR-ALKEM LABORATORIES LIMITED-GR-ALKEM-2018-07616

PATIENT
  Age: 64 Year
  Sex: Male

DRUGS (2)
  1. LINEZOLID. [Suspect]
     Active Substance: LINEZOLID
     Indication: STAPHYLOCOCCAL INFECTION
  2. LINEZOLID. [Suspect]
     Active Substance: LINEZOLID
     Indication: ABDOMINAL WALL ABSCESS
     Dosage: 600 MG, UNK
     Route: 042

REACTIONS (3)
  - Pancytopenia [Unknown]
  - Hepatic function abnormal [Unknown]
  - Drug level increased [Unknown]
